FAERS Safety Report 11451919 (Version 1)
Quarter: 2015Q3

REPORT INFORMATION
  Report Type: Spontaneous
  Country: None (occurrence: None)
  Receive Date: 20150902
  Receipt Date: 20150902
  Transmission Date: 20151125
  Serious: No
  Sender: FDA-Public Use
  Company Number: None

PATIENT
  Age: 50 Year
  Sex: Female
  Weight: 75 kg

DRUGS (5)
  1. AMLOPRESS [Concomitant]
  2. DIOVAN [Concomitant]
     Active Substance: VALSARTAN
  3. CAPTOPRIL. [Concomitant]
     Active Substance: CAPTOPRIL
  4. LOSARTAN. [Concomitant]
     Active Substance: LOSARTAN
  5. EXFORGE [Suspect]
     Active Substance: AMLODIPINE BESYLATE\VALSARTAN
     Dosage: 1 PILL ONCE DAILY
     Dates: start: 20150801, end: 20150901

REACTIONS (2)
  - Glossitis [None]
  - Gingivitis [None]

NARRATIVE: CASE EVENT DATE: 20150901
